FAERS Safety Report 5563591-3 (Version None)
Quarter: 2007Q4

REPORT INFORMATION
  Report Type: 
  Country: None (occurrence: None)
  Receive Date: 20071217
  Receipt Date: 20070713
  Transmission Date: 20080405
  Serious: No
  Sender: FDA-Public Use
  Company Number: US-ASTRAZENECA-2007UW16468

PATIENT
  Age: 77 Year
  Sex: Female
  Weight: 68 kg

DRUGS (6)
  1. CRESTOR [Suspect]
     Indication: BLOOD CHOLESTEROL INCREASED
     Route: 048
  2. CRESTOR [Suspect]
     Route: 048
  3. TOPROL-XL [Concomitant]
     Route: 048
  4. EVISTA [Concomitant]
  5. RANITIDINE HCL [Concomitant]
  6. MULTI-VITAMIN [Concomitant]

REACTIONS (1)
  - CONTUSION [None]
